FAERS Safety Report 8310528-X (Version None)
Quarter: 2012Q2

REPORT INFORMATION
  Report Type: 
  Country: None (occurrence: None)
  Receive Date: 20120425
  Receipt Date: 20120419
  Transmission Date: 20120825
  Serious: Yes (Other)
  Sender: FDA-Public Use
  Company Number: SE-ROCHE-1051448

PATIENT
  Sex: Female

DRUGS (12)
  1. ENTOCORT EC [Concomitant]
  2. KALCIPOS [Concomitant]
  3. EPIRUBICIN [Concomitant]
     Dates: end: 20111130
  4. ALVEDON [Concomitant]
  5. HERCEPTIN [Suspect]
     Indication: BREAST NEOPLASM
     Route: 042
     Dates: end: 20111130
  6. DIPENTUM [Concomitant]
  7. FLUOROURACIL [Concomitant]
     Dates: end: 20111130
  8. RISEDRONATE SODIUM [Concomitant]
  9. ASACOL [Concomitant]
  10. ELOCON [Concomitant]
  11. CYKLOFOSFAMID [Concomitant]
     Dates: end: 20111130
  12. DOCETAXEL [Concomitant]
     Dates: end: 20111130

REACTIONS (1)
  - TRANSAMINASES INCREASED [None]
